FAERS Safety Report 25955375 (Version 1)
Quarter: 2025Q4

REPORT INFORMATION
  Report Type: Spontaneous
  Country: CA (occurrence: CA)
  Receive Date: 20251024
  Receipt Date: 20251024
  Transmission Date: 20260118
  Serious: Yes (Life-Threatening, Hospitalization, Other)
  Sender: AUROBINDO
  Company Number: CA-MLMSERVICE-20210624-2967510-1

PATIENT
  Age: 10 Year
  Sex: Male

DRUGS (10)
  1. IBUPROFEN [Interacting]
     Active Substance: IBUPROFEN
     Indication: Pain
     Dosage: 600 MILLIGRAM, 6 HOURS
     Route: 048
     Dates: start: 20180128, end: 20180207
  2. HYDROMORPHONE [Interacting]
     Active Substance: HYDROMORPHONE
     Indication: Pain
     Dosage: 1 MILLIGRAM, Q4HR PRN
     Route: 065
     Dates: start: 20180127, end: 20180202
  3. HYDROMORPHONE [Interacting]
     Active Substance: HYDROMORPHONE
     Dosage: 2 MILLIGRAM Q4HR PRN
     Route: 065
     Dates: start: 20180127, end: 20180202
  4. DESMOPRESSIN [Suspect]
     Active Substance: DESMOPRESSIN
     Indication: Diabetes insipidus
     Dosage: 1.6 MILLIGRAM, 6 HOURS
     Route: 048
  5. DESMOPRESSIN [Suspect]
     Active Substance: DESMOPRESSIN
     Dosage: 0.6 MILLIGRAM, AS NECESSARY ON DAY 2, DAY 3, DAY 4 AND DAY 5.
     Route: 065
     Dates: start: 20180203, end: 20180206
  6. DESMOPRESSIN [Suspect]
     Active Substance: DESMOPRESSIN
     Dosage: 10 MICROGRAM
     Route: 045
     Dates: end: 201802
  7. SOMATROPIN [Concomitant]
     Active Substance: SOMATROPIN
     Indication: Product used for unknown indication
     Dosage: 1.3 MILLIGRAM, ONCE A DAY (GROWTH HORMONE)
     Route: 058
  8. HYDROCORTISONE [Concomitant]
     Active Substance: HYDROCORTISONE
     Indication: Diabetes insipidus
     Dosage: 15 MILLIGRAM, 3 TIMES A DAY
     Route: 048
  9. HYDROCORTISONE [Concomitant]
     Active Substance: HYDROCORTISONE
     Dosage: UNK (DOUBLE MAINTENANCE FOR 2 ADDITIONAL DAYS)
     Route: 065
  10. HYDROCORTISONE [Concomitant]
     Active Substance: HYDROCORTISONE
     Dosage: 6 MILLIGRAM, TWO TIMES A DAY
     Route: 048

REACTIONS (5)
  - Hyponatraemia [Recovered/Resolved]
  - Apnoeic attack [Recovered/Resolved]
  - Seizure [Recovered/Resolved]
  - Unresponsive to stimuli [Recovered/Resolved]
  - Drug interaction [Recovered/Resolved]

NARRATIVE: CASE EVENT DATE: 20180202
